FAERS Safety Report 8708191 (Version 3)
Quarter: 2012Q4

REPORT INFORMATION
  Report Type: 
  Country: JP (occurrence: JP)
  Receive Date: 20120806
  Receipt Date: 20121005
  Transmission Date: 20130627
  Serious: Yes (Hospitalization, Other)
  Sender: FDA-Public Use
  Company Number: JP-JNJFOC-20120714667

PATIENT
  Age: 91 Year
  Sex: Female

DRUGS (2)
  1. DUROTEP MT [Suspect]
     Indication: CANCER PAIN
     Route: 062
     Dates: start: 20120725
  2. OXYCODONE HYDROCHLORIDE [Suspect]
     Indication: CANCER PAIN
     Dosage: 160 mg once a day
     Route: 065
     Dates: start: 20120720, end: 20120724

REACTIONS (5)
  - Haematochezia [Unknown]
  - Diarrhoea [Unknown]
  - Dehydration [Unknown]
  - Pyrexia [Not Recovered/Not Resolved]
  - Mucous stools [Unknown]
